FAERS Safety Report 7475146-4 (Version None)
Quarter: 2011Q1

REPORT INFORMATION
  Report Type: 
  Country: None (occurrence: None)
  Receive Date: 20110302
  Receipt Date: 20101221
  Transmission Date: 20110831
  Serious: Yes (Death, Hospitalization, Other)
  Sender: FDA-Public Use
  Company Number: 163-21880-08120727

PATIENT
  Age: 61 Year
  Sex: Male

DRUGS (2)
  1. REVLIMID [Suspect]
     Indication: MULTIPLE MYELOMA
     Dosage: 10 MG, DAILY X 28 DAYS, PO; 25 MG, 1 IN 1 D, PO
     Route: 048
     Dates: start: 20081111, end: 20080101
  2. EXAMETHASONE (DEXAMETHASONE) [Concomitant]

REACTIONS (3)
  - STAPHYLOCOCCAL INFECTION [None]
  - PLEURAL EFFUSION [None]
  - SEPSIS [None]
